FAERS Safety Report 18439538 (Version 1)
Quarter: 2020Q4

REPORT INFORMATION
  Report Type: Spontaneous
  Country: CN (occurrence: CN)
  Receive Date: 20201029
  Receipt Date: 20201029
  Transmission Date: 20210114
  Serious: Yes (Hospitalization, Other)
  Sender: FDA-Public Use
  Company Number: CN-TOPROL-202000050

PATIENT
  Age: 57 Year
  Sex: Male

DRUGS (5)
  1. BETALOC ZOK [Suspect]
     Active Substance: METOPROLOL SUCCINATE
     Indication: HYPERTENSION
     Dosage: HALF A TABLET IN THE 1ST 2 YEARS
     Route: 048
     Dates: start: 2015
  2. ATORVASTATIN [Concomitant]
     Active Substance: ATORVASTATIN
     Indication: HYPERLIPIDAEMIA
     Dosage: 1 TABLET EVERY NIGHT
  3. ASPIRIN. [Suspect]
     Active Substance: ASPIRIN
     Indication: PRODUCT USED FOR UNKNOWN INDICATION
     Dosage: ENTERIC-COATED TABLETS, SUSTAINED-RELEASE TABLET. 1 TABLET EVERY NIGHT.
     Route: 048
  4. AMLODIPINE BESILATE [Concomitant]
     Active Substance: AMLODIPINE BESYLATE
     Indication: HYPERTENSION
     Dosage: 1 TABLET EVERY MORNING
     Route: 048
  5. VALSARTAN. [Concomitant]
     Active Substance: VALSARTAN
     Indication: HYPERTENSION
     Dosage: 1 TABLET EVERY MORNING
     Route: 048

REACTIONS (14)
  - Demyelination [Unknown]
  - Gingival bleeding [Not Recovered/Not Resolved]
  - Low density lipoprotein increased [Recovering/Resolving]
  - Blood creatinine increased [Recovering/Resolving]
  - Lacunar infarction [Unknown]
  - Hypoaesthesia [Unknown]
  - Blood glucose increased [Recovering/Resolving]
  - Heart rate increased [Recovered/Resolved]
  - Tinnitus [Not Recovered/Not Resolved]
  - Intentional product misuse [Unknown]
  - Blood uric acid increased [Unknown]
  - Blood triglycerides increased [Recovering/Resolving]
  - Night sweats [Recovered/Resolved]
  - Dizziness [Recovering/Resolving]

NARRATIVE: CASE EVENT DATE: 2019
